FAERS Safety Report 5828437-4 (Version None)
Quarter: 2008Q3

REPORT INFORMATION
  Report Type: 
  Country: None (occurrence: None)
  Receive Date: 20080731
  Receipt Date: 20080722
  Transmission Date: 20090109
  Serious: Yes (Disabling)
  Sender: FDA-Public Use
  Company Number: US-ROCHE-505478

PATIENT
  Sex: Female
  Weight: 49.9 kg

DRUGS (1)
  1. BONIVA [Suspect]
     Indication: OSTEOPOROSIS
     Dosage: MONTHLY
     Route: 048
     Dates: start: 20061101, end: 20070601

REACTIONS (2)
  - CONJUNCTIVITIS [None]
  - EPISCLERITIS [None]
